FAERS Safety Report 4314591-2 (Version None)
Quarter: 2004Q1

REPORT INFORMATION
  Report Type: 
  Country: None (occurrence: None)
  Receive Date: 20040308
  Receipt Date: 20040226
  Transmission Date: 20041129
  Serious: Yes (Death)
  Sender: FDA-Public Use
  Company Number: 2004201022DE

PATIENT
  Age: 62 Year
  Sex: Female

DRUGS (2)
  1. DYNASTAT (PARECOXIB SODIUM) POWDER, STERILE [Suspect]
     Dosage: PRN, IV
     Route: 042
  2. BEXTRA [Suspect]
     Dosage: 1 TAB, QD, ORAL
     Route: 048

REACTIONS (1)
  - ARRHYTHMIA [None]
